FAERS Safety Report 7715168-9 (Version None)
Quarter: 2011Q3

REPORT INFORMATION
  Report Type: 
  Country: None (occurrence: None)
  Receive Date: 20110829
  Receipt Date: 20110822
  Transmission Date: 20111222
  Serious: Yes (Death)
  Sender: FDA-Public Use
  Company Number: FR-BRISTOL-MYERS SQUIBB COMPANY-16003345

PATIENT
  Age: 68 Year
  Sex: Male
  Weight: 86 kg

DRUGS (9)
  1. LEUCOVORIN CALCIUM [Suspect]
     Indication: COLORECTAL CANCER METASTATIC
     Route: 042
     Dates: start: 20110712
  2. LERCANIDIPINE [Concomitant]
  3. VALSARTAN  AND HYDROCHLOROTHIAZIDE [Concomitant]
  4. LANSOYL [Concomitant]
  5. IRINOTECAN HCL [Suspect]
     Indication: COLORECTAL CANCER METASTATIC
     Route: 042
     Dates: start: 20110712
  6. CRESTOR [Concomitant]
  7. PANTOPRAZOLE [Concomitant]
  8. CETUXIMAB [Suspect]
     Indication: COLORECTAL CANCER METASTATIC
     Dosage: FIRST INFUSION ON 12JUL2011
     Route: 042
     Dates: start: 20110712
  9. OXALIPLATIN [Suspect]
     Indication: COLORECTAL CANCER METASTATIC
     Route: 042
     Dates: start: 20110712

REACTIONS (2)
  - PYREXIA [None]
  - AGRANULOCYTOSIS [None]
